FAERS Safety Report 24801257 (Version 1)
Quarter: 2025Q1

REPORT INFORMATION
  Report Type: Spontaneous
  Country: US (occurrence: None)
  Receive Date: 20250102
  Receipt Date: 20250102
  Transmission Date: 20250408
  Serious: Yes (Hospitalization)
  Sender: FDA-CTU
  Company Number: None

PATIENT
  Age: 66 Year
  Sex: Female

DRUGS (10)
  1. REPATHA [Suspect]
     Active Substance: EVOLOCUMAB
     Indication: Hyperlipidaemia
     Route: 058
     Dates: start: 20240126
  2. EZETIMIBE [Concomitant]
     Active Substance: EZETIMIBE
  3. METOPROLOL [Concomitant]
     Active Substance: METOPROLOL
  4. SERTRALINE [Concomitant]
     Active Substance: SERTRALINE HYDROCHLORIDE
  5. ASPIRIN [Concomitant]
     Active Substance: ASPIRIN
  6. BENAZEPRIL [Concomitant]
     Active Substance: BENAZEPRIL HYDROCHLORIDE
  7. ATORVASTATIN [Concomitant]
     Active Substance: ATORVASTATIN
  8. Collagen tablets [Concomitant]
  9. VITAMINS [Concomitant]
     Active Substance: VITAMINS
  10. BRILINTA [Concomitant]
     Active Substance: TICAGRELOR

REACTIONS (1)
  - Stent placement [None]

NARRATIVE: CASE EVENT DATE: 20241020
